FAERS Safety Report 18484839 (Version 1)
Quarter: 2020Q4

REPORT INFORMATION
  Report Type: Spontaneous
  Country: US (occurrence: US)
  Receive Date: 20201109
  Receipt Date: 20201109
  Transmission Date: 20210114
  Serious: Yes (Hospitalization)
  Sender: FDA-Public Use
  Company Number: None

PATIENT
  Age: 61 Year
  Sex: Female

DRUGS (6)
  1. RIZATRIPTAN. [Concomitant]
     Active Substance: RIZATRIPTAN
  2. VENLAFAXINE [Concomitant]
     Active Substance: VENLAFAXINE HYDROCHLORIDE
  3. BOTOX [Suspect]
     Active Substance: ONABOTULINUMTOXINA
     Indication: MIGRAINE
     Dosage: ?          OTHER FREQUENCY:EVERY 90 DAYS;?
     Route: 030
     Dates: start: 20151123
  4. PROGESTERONE. [Concomitant]
     Active Substance: PROGESTERONE
  5. HYDROCO/APAP [Concomitant]
     Active Substance: ACETAMINOPHEN\HYDROCODONE
  6. CYANOCOBALAM [Concomitant]
     Active Substance: CYANOCOBALAMIN

REACTIONS (2)
  - Kidney infection [None]
  - Therapy interrupted [None]
